FAERS Safety Report 7755545-3 (Version None)
Quarter: 2011Q3

REPORT INFORMATION
  Report Type: 
  Country: None (occurrence: None)
  Receive Date: 20110916
  Receipt Date: 20110912
  Transmission Date: 20111222
  Serious: Yes (Death, Hospitalization)
  Sender: FDA-Public Use
  Company Number: US-ASTELLAS-2011US001986

PATIENT
  Age: 67 Year
  Sex: Male
  Weight: 75 kg

DRUGS (3)
  1. TACROLIMUS [Suspect]
     Indication: LIVER TRANSPLANT
     Dosage: 0.5-5.0 MG BID
     Route: 048
     Dates: start: 20110127, end: 20110302
  2. ANIDULAFUNGIN [Suspect]
     Indication: ANTIFUNGAL PROPHYLAXIS
     Dosage: UNK, UID/QD
     Route: 042
     Dates: start: 20110127, end: 20110309
  3. FLUCONAZOLE [Suspect]
     Indication: ANTIFUNGAL PROPHYLAXIS
     Dosage: UNK, UID/QD
     Route: 042
     Dates: start: 20110127, end: 20110309

REACTIONS (3)
  - GRAFT VERSUS HOST DISEASE [None]
  - NEUTROPENIA [None]
  - NEUROTOXICITY [None]
